FAERS Safety Report 19007579 (Version 1)
Quarter: 2021Q1

REPORT INFORMATION
  Report Type: Report from Study
  Country: US (occurrence: US)
  Receive Date: 20210315
  Receipt Date: 20210315
  Transmission Date: 20210420
  Serious: Yes (Hospitalization, Other)
  Sender: FDA-Public Use
  Company Number: US-AUROBINDO-AUR-APL-2019-050296

PATIENT
  Age: 80 Year
  Sex: Female
  Weight: 75 kg

DRUGS (15)
  1. FENTANYL TRANSDERMAL SYSTEM [Concomitant]
     Active Substance: FENTANYL
     Indication: PRODUCT USED FOR UNKNOWN INDICATION
     Dosage: UNK
     Route: 065
  2. SENNA [Concomitant]
     Active Substance: SENNA LEAF\SENNOSIDES\SENNOSIDES A AND B
     Indication: PRODUCT USED FOR UNKNOWN INDICATION
     Dosage: UNK
     Route: 065
  3. COLACE [Concomitant]
     Active Substance: DOCUSATE SODIUM
     Indication: PRODUCT USED FOR UNKNOWN INDICATION
     Dosage: UNK
     Route: 065
  4. RITUXAN [Concomitant]
     Active Substance: RITUXIMAB
     Indication: B-CELL LYMPHOMA
     Dosage: 450 MILLIGRAM
     Route: 042
     Dates: start: 20080513, end: 20080513
  5. GLYBURIDE. [Concomitant]
     Active Substance: GLYBURIDE
     Indication: PRODUCT USED FOR UNKNOWN INDICATION
     Dosage: UNK
     Route: 065
  6. LACTULOSE. [Concomitant]
     Active Substance: LACTULOSE
     Indication: PRODUCT USED FOR UNKNOWN INDICATION
     Dosage: UNK
     Route: 065
  7. ENALAPRIL [Concomitant]
     Active Substance: ENALAPRIL
     Indication: PRODUCT USED FOR UNKNOWN INDICATION
     Dosage: UNK
     Route: 065
  8. LEVOTHYROXINE. [Concomitant]
     Active Substance: LEVOTHYROXINE
     Indication: PRODUCT USED FOR UNKNOWN INDICATION
     Dosage: UNK
     Route: 065
  9. ZEVALIN [Suspect]
     Active Substance: IBRITUMOMAB TIUXETAN
     Indication: NON-HODGKIN^S LYMPHOMA
     Dosage: 30 MILLICURIE
     Route: 042
     Dates: start: 20080513, end: 20080513
  10. BORTEZOMIB. [Concomitant]
     Active Substance: BORTEZOMIB
     Dosage: 2 MILLIGRAM
     Route: 042
     Dates: start: 20080523
  11. LYRICA [Concomitant]
     Active Substance: PREGABALIN
     Indication: PRODUCT USED FOR UNKNOWN INDICATION
     Dosage: UNK
     Route: 065
  12. RITUXAN [Concomitant]
     Active Substance: RITUXIMAB
     Dosage: 450 MILLIGRAM
     Route: 042
     Dates: start: 20080523
  13. ZEVALIN [Suspect]
     Active Substance: IBRITUMOMAB TIUXETAN
     Indication: B-CELL LYMPHOMA
     Dosage: 30 MILLICURIE
     Route: 042
     Dates: start: 20080523
  14. YTTRIUM (90 Y) [Suspect]
     Active Substance: YTTRIUM CHLORIDE Y-90
     Indication: B-CELL LYMPHOMA
     Dosage: 30.2 UNK, ONCE A DAY
     Route: 065
     Dates: start: 20080513, end: 20080513
  15. BORTEZOMIB. [Concomitant]
     Active Substance: BORTEZOMIB
     Indication: B-CELL LYMPHOMA
     Dosage: 2 MILLIGRAM
     Route: 042
     Dates: start: 20080513

REACTIONS (16)
  - Failure to thrive [Not Recovered/Not Resolved]
  - Fatigue [Not Recovered/Not Resolved]
  - Pain [Not Recovered/Not Resolved]
  - Ataxia [Unknown]
  - Gait disturbance [Unknown]
  - Spinal osteoarthritis [Unknown]
  - Dehydration [Recovered/Resolved]
  - Peripheral sensorimotor neuropathy [Not Recovered/Not Resolved]
  - Neuropathy peripheral [Not Recovered/Not Resolved]
  - Gastritis [Not Recovered/Not Resolved]
  - Dysphagia [Unknown]
  - Decreased appetite [Unknown]
  - Pain in extremity [Not Recovered/Not Resolved]
  - Depression [Recovered/Resolved]
  - Asthenia [Not Recovered/Not Resolved]
  - Dizziness [Unknown]

NARRATIVE: CASE EVENT DATE: 200806
